FAERS Safety Report 22906633 (Version 3)
Quarter: 2023Q4

REPORT INFORMATION
  Report Type: Spontaneous
  Country: US (occurrence: US)
  Receive Date: 20230905
  Receipt Date: 20231012
  Transmission Date: 20240109
  Serious: Yes (Hospitalization, Other)
  Sender: FDA-Public Use
  Company Number: US-UCBSA-2023043197

PATIENT
  Sex: Female

DRUGS (1)
  1. CIMZIA [Suspect]
     Active Substance: CERTOLIZUMAB PEGOL
     Indication: Crohn^s disease
     Dosage: UNK
     Dates: end: 202308

REACTIONS (4)
  - Haemorrhage [Not Recovered/Not Resolved]
  - Crohn^s disease [Recovering/Resolving]
  - Drug ineffective [Unknown]
  - Impaired work ability [Unknown]

NARRATIVE: CASE EVENT DATE: 20230801
